FAERS Safety Report 8877550 (Version 1)
Quarter: 2012Q4

REPORT INFORMATION
  Report Type: 
  Country: FR (occurrence: FR)
  Receive Date: 20121024
  Receipt Date: 20121024
  Transmission Date: 20130627
  Serious: Yes (Other)
  Sender: FDA-Public Use
  Company Number: FR-009507513-1206USA01360

PATIENT

DRUGS (1)
  1. PROPECIA [Suspect]
     Indication: ALOPECIA
     Dosage: 1 mg, qd
     Route: 048
     Dates: start: 2008, end: 201112

REACTIONS (3)
  - Palpitations [Recovered/Resolved]
  - Asthenia [Recovered/Resolved]
  - Atrial fibrillation [Recovered/Resolved]
